FAERS Safety Report 7313382-8 (Version None)
Quarter: 2011Q1

REPORT INFORMATION
  Report Type: 
  Country: None (occurrence: None)
  Receive Date: 20110225
  Receipt Date: 20110222
  Transmission Date: 20110831
  Serious: No
  Sender: FDA-Public Use
  Company Number: US-PFIZER INC-2011039119

PATIENT
  Sex: Female
  Weight: 67.574 kg

DRUGS (5)
  1. LORAZEPAM [Concomitant]
     Dosage: UNK, DAILY
  2. PROTONIX [Concomitant]
     Dosage: 40 MG, UNK
  3. LOTENSIN [Concomitant]
     Indication: CHEST PAIN
     Dosage: UNK, 2X/DAY
  4. VERAPAMIL [Suspect]
     Indication: HYPERTENSION
     Dosage: 180 MG, 2X/DAY
     Route: 048
     Dates: start: 20100101, end: 20100101
  5. CALAN [Suspect]
     Indication: HYPERTENSION
     Dosage: 180 MG, 2X/DAY
     Route: 048

REACTIONS (13)
  - DIZZINESS [None]
  - NAUSEA [None]
  - NERVOUSNESS [None]
  - HEADACHE [None]
  - INFLUENZA [None]
  - HAEMORRHAGE [None]
  - CHEST PAIN [None]
  - VOMITING [None]
  - ANXIETY [None]
  - THYROID DISORDER [None]
  - HYPERSENSITIVITY [None]
  - MALAISE [None]
  - FEAR [None]
